FAERS Safety Report 5765132-4 (Version None)
Quarter: 2008Q2

REPORT INFORMATION
  Report Type: 
  Country: None (occurrence: None)
  Receive Date: 20080611
  Receipt Date: 20080602
  Transmission Date: 20081010
  Serious: Yes (Hospitalization)
  Sender: FDA-Public Use
  Company Number: FR-JNJFOC-20080600349

PATIENT
  Sex: Female

DRUGS (8)
  1. SUFENTANIL CITRATE [Suspect]
     Indication: PREOPERATIVE CARE
     Route: 042
  2. HYPNOVEL [Suspect]
     Indication: PREOPERATIVE CARE
     Route: 065
  3. PROPOFOL [Suspect]
     Indication: PREOPERATIVE CARE
     Route: 065
  4. SEVORANE [Suspect]
     Indication: PREOPERATIVE CARE
     Route: 055
  5. ULTRACET [Suspect]
     Indication: POSTOPERATIVE CARE
     Route: 065
  6. AUGMENTIN '125' [Suspect]
     Indication: ANTIBIOTIC PROPHYLAXIS
     Route: 065
  7. DOLIPRANE [Concomitant]
  8. SPASFON [Concomitant]

REACTIONS (1)
  - RENAL FAILURE ACUTE [None]
